FAERS Safety Report 9586600 (Version 1)
Quarter: 2013Q4

REPORT INFORMATION
  Report Type: Spontaneous
  Country: US (occurrence: None)
  Receive Date: 20131001
  Receipt Date: 20131001
  Transmission Date: 20140711
  Serious: Yes (Other)
  Sender: FDA-Public Use
  Company Number: SYM-2013-11052

PATIENT
  Age: 75 Year
  Sex: Male

DRUGS (1)
  1. XENAZINE [Suspect]
     Route: 048
     Dates: start: 20120529

REACTIONS (6)
  - Cough [None]
  - Choking [None]
  - Gait disturbance [None]
  - Balance disorder [None]
  - Fall [None]
  - Cognitive disorder [None]
